FAERS Safety Report 8356028-2 (Version None)
Quarter: 2012Q2

REPORT INFORMATION
  Report Type: 
  Country: None (occurrence: None)
  Receive Date: 20120511
  Receipt Date: 20120511
  Transmission Date: 20120825
  Serious: Yes (Other)
  Sender: FDA-Public Use
  Company Number: None

PATIENT
  Age: 7 Year
  Sex: Female
  Weight: 39.4629 kg

DRUGS (1)
  1. METADATE CD [Suspect]
     Indication: ATTENTION DEFICIT/HYPERACTIVITY DISORDER
     Dosage: 20 MG Q AM PO
     Route: 048
     Dates: start: 20120502, end: 20120502

REACTIONS (4)
  - DYSTONIA [None]
  - CHEILITIS [None]
  - STOMATITIS [None]
  - TARDIVE DYSKINESIA [None]
